FAERS Safety Report 6749223-7 (Version None)
Quarter: 2010Q2

REPORT INFORMATION
  Report Type: 
  Country: None (occurrence: None)
  Receive Date: 20100601
  Receipt Date: 20100527
  Transmission Date: 20101027
  Serious: Yes (Hospitalization)
  Sender: FDA-Public Use
  Company Number: US-BAYER-201026752GPV

PATIENT
  Age: 52 Year
  Sex: Female

DRUGS (9)
  1. ALEVE (CAPLET) [Suspect]
     Indication: DRUG USE FOR UNKNOWN INDICATION
     Route: 065
     Dates: start: 20100408
  2. SELECTIVE B-RAF KINASE INHIBITOR [Suspect]
     Indication: MALIGNANT MELANOMA
     Route: 048
     Dates: start: 20100330
  3. MEDROL [Suspect]
     Indication: DRUG USE FOR UNKNOWN INDICATION
     Dates: start: 20100410, end: 20100415
  4. TYLENOL [Suspect]
     Indication: DRUG USE FOR UNKNOWN INDICATION
  5. LISINOPRIL [Concomitant]
     Dates: start: 20100317
  6. EPIMESTROL [Concomitant]
  7. BENICAR [Concomitant]
     Dates: start: 20080815
  8. K-DUR [Concomitant]
     Dates: start: 20100409, end: 20100418
  9. MACROBID [Concomitant]
     Dates: start: 20100409, end: 20100416

REACTIONS (1)
  - DIARRHOEA HAEMORRHAGIC [None]
